FAERS Safety Report 16966361 (Version 5)
Quarter: 2020Q3

REPORT INFORMATION
  Report Type: Report from Study
  Country: None (occurrence: US)
  Receive Date: 20191028
  Receipt Date: 20200824
  Transmission Date: 20201102
  Serious: Yes (Hospitalization, Other)
  Sender: FDA-Public Use
  Company Number: US-ABBVIE-19K-163-2974550-00

PATIENT
  Age: 49 Year
  Sex: Female
  Weight: 83.99 kg

DRUGS (2)
  1. ORILISSA [Suspect]
     Active Substance: ELAGOLIX SODIUM
     Indication: ENDOMETRIOSIS
     Route: 048
     Dates: start: 20190905, end: 20190905
  2. TRAMADOL. [Concomitant]
     Active Substance: TRAMADOL
     Indication: PAIN

REACTIONS (8)
  - Mania [Unknown]
  - Multiple sclerosis [Unknown]
  - Pain [Unknown]
  - Suicidal ideation [Recovered/Resolved]
  - Thinking abnormal [Unknown]
  - Hysterectomy [Recovered/Resolved]
  - Depression [Recovered/Resolved]
  - Drug ineffective [Unknown]

NARRATIVE: CASE EVENT DATE: 2019
